FAERS Safety Report 18779483 (Version 2)
Quarter: 2021Q1

REPORT INFORMATION
  Report Type: Report from Study
  Country: US (occurrence: US)
  Receive Date: 20210125
  Receipt Date: 20210129
  Transmission Date: 20210419
  Serious: No
  Sender: FDA-Public Use
  Company Number: US-AGIOS-2101US02461

PATIENT

DRUGS (2)
  1. TIBSOVO [Suspect]
     Active Substance: IVOSIDENIB
     Indication: CHONDROSARCOMA
  2. TIBSOVO [Suspect]
     Active Substance: IVOSIDENIB
     Indication: NEOPLASM MALIGNANT
     Dosage: 500 MILLIGRAM (TWO 250MG TABLETS), QD
     Route: 048
     Dates: start: 20201030, end: 20201231

REACTIONS (2)
  - Disease progression [Recovered/Resolved]
  - Off label use [Recovered/Resolved]

NARRATIVE: CASE EVENT DATE: 20201030
